FAERS Safety Report 12239204 (Version 1)
Quarter: 2016Q2

REPORT INFORMATION
  Report Type: Report from Study
  Country: US (occurrence: US)
  Receive Date: 20160405
  Receipt Date: 20160405
  Transmission Date: 20160815
  Serious: No
  Sender: FDA-Public Use
  Company Number: GXBR2015US001263

PATIENT
  Age: 13 Year
  Sex: Male
  Weight: 41.19 kg

DRUGS (3)
  1. TOPIRAMATE. [Concomitant]
     Active Substance: TOPIRAMATE
     Indication: HEADACHE
     Dosage: UNK DF, UNK
  2. OMNITROPE [Suspect]
     Active Substance: SOMATROPIN
     Indication: GROWTH HORMONE DEFICIENCY
     Dosage: 2.6 MG, QD
     Route: 065
     Dates: start: 20141001
  3. OMNITROPE [Suspect]
     Active Substance: SOMATROPIN
     Indication: HYPOPITUITARISM
     Dosage: 2 MG, SIX DAYS A WEEK
     Route: 065
     Dates: start: 20150709

REACTIONS (8)
  - Eye pain [Recovered/Resolved]
  - Headache [Recovered/Resolved]
  - Tinnitus [Recovered/Resolved]
  - Insomnia [Unknown]
  - Vision blurred [Recovered/Resolved]
  - Abdominal pain upper [Recovered/Resolved]
  - Vomiting [Recovered/Resolved]
  - Nausea [Recovered/Resolved]

NARRATIVE: CASE EVENT DATE: 201410
